FAERS Safety Report 15034611 (Version 1)
Quarter: 2018Q2

REPORT INFORMATION
  Report Type: Spontaneous
  Country: SE (occurrence: SE)
  Receive Date: 20180620
  Receipt Date: 20180620
  Transmission Date: 20180711
  Serious: Yes (Hospitalization, Other)
  Sender: FDA-Public Use
  Company Number: SE-IPCA LABORATORIES LIMITED-IPC201303-000093

PATIENT
  Age: 55 Year
  Sex: Female

DRUGS (1)
  1. LOSARTAN. [Suspect]
     Active Substance: LOSARTAN
     Indication: HYPERTENSION
     Dosage: 50 MG, UNK
     Route: 048

REACTIONS (5)
  - Ejection fraction decreased [Unknown]
  - Hypersensitivity [Unknown]
  - Blood pressure systolic decreased [Unknown]
  - Kounis syndrome [Recovering/Resolving]
  - Arteriospasm coronary [Recovered/Resolved]
